FAERS Safety Report 6182960-4 (Version None)
Quarter: 2009Q2

REPORT INFORMATION
  Report Type: 
  Country: None (occurrence: None)
  Receive Date: 20090507
  Receipt Date: 20090506
  Transmission Date: 20091009
  Serious: Yes (Hospitalization)
  Sender: FDA-Public Use
  Company Number: US-BAYER-200717200NA

PATIENT
  Age: 72 Year
  Sex: Male

DRUGS (2)
  1. DACARBAZINE [Suspect]
     Indication: MALIGNANT MELANOMA
     Dosage: TOTAL DAILY DOSE: 1760 MG
     Route: 042
     Dates: start: 20070927, end: 20070927
  2. IPILIMUMAB OR PLACEBO [Suspect]
     Indication: MALIGNANT MELANOMA
     Dosage: TOTAL DAILY DOSE: 828 MG
     Route: 042
     Dates: start: 20070927, end: 20070927

REACTIONS (2)
  - CHILLS [None]
  - PYREXIA [None]
